FAERS Safety Report 7110468-8 (Version None)
Quarter: 2010Q4

REPORT INFORMATION
  Report Type: 
  Country: None (occurrence: None)
  Receive Date: 20101116
  Receipt Date: 20101116
  Transmission Date: 20110411
  Serious: Yes (Other)
  Sender: FDA-Public Use
  Company Number: None

PATIENT
  Age: 62 Year
  Sex: Male
  Weight: 78.0187 kg

DRUGS (1)
  1. OXYCONTIN [Suspect]
     Dosage: 80MG 3 PER DAY PO
     Route: 048

REACTIONS (2)
  - PAIN [None]
  - PRODUCT FORMULATION ISSUE [None]
